FAERS Safety Report 24853672 (Version 1)
Quarter: 2025Q1

REPORT INFORMATION
  Report Type: Spontaneous
  Country: US (occurrence: US)
  Receive Date: 20250117
  Receipt Date: 20250117
  Transmission Date: 20250408
  Serious: Yes (Other)
  Sender: APOTEX
  Company Number: US-APOTEX-2025AP001092

PATIENT
  Age: 88 Year
  Sex: Female

DRUGS (1)
  1. AMOXICILLIN\CLAVULANATE POTASSIUM [Suspect]
     Active Substance: AMOXICILLIN\CLAVULANATE POTASSIUM
     Indication: Oesophageal injury
     Route: 065

REACTIONS (1)
  - Acute generalised exanthematous pustulosis [Unknown]
